FAERS Safety Report 9231029 (Version 1)
Quarter: 2013Q2

REPORT INFORMATION
  Report Type: Report from Study
  Country: TW (occurrence: TW)
  Receive Date: 20130415
  Receipt Date: 20130415
  Transmission Date: 20140414
  Serious: Yes (Hospitalization)
  Sender: FDA-Public Use
  Company Number: TW-UCBSA-028922

PATIENT
  Age: 43 Year
  Sex: Female
  Weight: 60 kg

DRUGS (7)
  1. LEVETIRACETAM [Suspect]
     Indication: PARTIAL SEIZURES
     Route: 048
     Dates: start: 20090922, end: 20110113
  2. LEVETIRACETAM [Suspect]
     Indication: PARTIAL SEIZURES
     Route: 048
     Dates: start: 20110116
  3. TRILEPTAL [Suspect]
     Indication: PARTIAL SEIZURES
     Dates: start: 20040714, end: 20110127
  4. TRILEPTAL [Suspect]
     Indication: PARTIAL SEIZURES
     Dates: start: 20110128
  5. BACLOFEN [Concomitant]
     Indication: HEADACHE
  6. PROPOXYPHENE HCL AND ACETAMINOPHEN [Concomitant]
     Indication: HEADACHE
  7. DEXTROPROPOXYPHENE HYDROCHLORIDE, PARACETAMOL [Concomitant]
     Dates: start: 20100503

REACTIONS (3)
  - Hyponatraemia [Recovered/Resolved]
  - Thrombocytopenia [Recovered/Resolved]
  - Acute tonsillitis [Recovered/Resolved]
